FAERS Safety Report 13915520 (Version 1)
Quarter: 2017Q3

REPORT INFORMATION
  Report Type: Spontaneous
  Country: US (occurrence: US)
  Receive Date: 20170828
  Receipt Date: 20170828
  Transmission Date: 20171127
  Serious: Yes (Hospitalization, Other)
  Sender: FDA-Public Use
  Company Number: None

PATIENT
  Sex: Female
  Weight: 76.05 kg

DRUGS (17)
  1. GABAPENTIN. [Suspect]
     Active Substance: GABAPENTIN
     Indication: HERPES ZOSTER
     Dates: start: 20170703, end: 20170712
  2. AMBIEN [Concomitant]
     Active Substance: ZOLPIDEM TARTRATE
  3. GABAPENTIN. [Suspect]
     Active Substance: GABAPENTIN
     Indication: NEURALGIA
     Dates: start: 20170703, end: 20170712
  4. MIRTAZAPINE. [Concomitant]
     Active Substance: MIRTAZAPINE
  5. GEMFIBROZIL. [Concomitant]
     Active Substance: GEMFIBROZIL
  6. INSULIN PUMP [Concomitant]
     Active Substance: INSULIN NOS
  7. SINGULAIR [Concomitant]
     Active Substance: MONTELUKAST SODIUM
  8. ATENOLOL. [Concomitant]
     Active Substance: ATENOLOL
  9. B1 [Concomitant]
  10. POTASSIUM CHLORIDE. [Concomitant]
     Active Substance: POTASSIUM CHLORIDE
  11. PRAVASTATIN. [Concomitant]
     Active Substance: PRAVASTATIN
  12. NOVOLOG [Concomitant]
     Active Substance: INSULIN ASPART
  13. SPIRONOLACTONE. [Concomitant]
     Active Substance: SPIRONOLACTONE
  14. SYNTHROID [Concomitant]
     Active Substance: LEVOTHYROXINE SODIUM
  15. ASPIRIN. [Concomitant]
     Active Substance: ASPIRIN
  16. LEXAPRO [Concomitant]
     Active Substance: ESCITALOPRAM OXALATE
  17. VITAMIN B COMPLEX [Concomitant]
     Active Substance: CYANOCOBALAMIN\DEXPANTHENOL\NIACINAMIDE\PYRIDOXINE HYDROCHLORIDE\RIBOFLAVIN 5^-PHOSPHATE SODIUM\THIAMINE HYDROCHLORIDE\VITAMIN B COMPLEX

REACTIONS (10)
  - Impaired driving ability [None]
  - Vision blurred [None]
  - Gait disturbance [None]
  - Cognitive disorder [None]
  - Paraesthesia [None]
  - Generalised tonic-clonic seizure [None]
  - Neurological symptom [None]
  - Amnesia [None]
  - Fine motor skill dysfunction [None]
  - Thinking abnormal [None]

NARRATIVE: CASE EVENT DATE: 20170721
